FAERS Safety Report 7639531-X (Version None)
Quarter: 2011Q3

REPORT INFORMATION
  Report Type: 
  Country: None (occurrence: None)
  Receive Date: 20110727
  Receipt Date: 20110720
  Transmission Date: 20111222
  Serious: Yes (Hospitalization)
  Sender: FDA-Public Use
  Company Number: JP-GLAXOSMITHKLINE-B0730095A

PATIENT
  Sex: Female

DRUGS (3)
  1. CARPRONIUM [Concomitant]
     Indication: ALOPECIA
     Route: 061
     Dates: start: 20110125
  2. DEPAKENE [Concomitant]
     Indication: EPILEPSY
     Dosage: 800MG PER DAY
     Route: 048
     Dates: start: 20020101
  3. LAMICTAL [Suspect]
     Indication: EPILEPSY
     Dosage: 25MG ALTERNATE DAYS
     Route: 048
     Dates: start: 20110601, end: 20110623

REACTIONS (5)
  - RASH [None]
  - OROPHARYNGEAL DISCOMFORT [None]
  - PYREXIA [None]
  - COUGH [None]
  - SWELLING FACE [None]
